FAERS Safety Report 4953795-2 (Version None)
Quarter: 2006Q1

REPORT INFORMATION
  Report Type: 
  Country: None (occurrence: None)
  Receive Date: 20060327
  Receipt Date: 20060316
  Transmission Date: 20060701
  Serious: Yes (Death, Other)
  Sender: FDA-Public Use
  Company Number: JP-BRISTOL-MYERS SQUIBB COMPANY-13323407

PATIENT
  Age: 42 Year
  Sex: Male

DRUGS (10)
  1. ENDOXAN [Suspect]
     Indication: ALLOGENIC BONE MARROW TRANSPLANTATION THERAPY
     Dates: start: 19980301, end: 19980301
  2. PREDONINE [Concomitant]
     Dates: start: 19981001, end: 20021101
  3. INTERFERON ALFA [Concomitant]
     Dates: start: 19971101
  4. MABLIN [Concomitant]
     Dates: start: 19980301, end: 19980301
  5. TACROLIMUS [Concomitant]
     Dates: start: 19980501
  6. GEMCITABINE [Concomitant]
  7. VINORELBINE [Concomitant]
  8. PACLITAXEL [Concomitant]
  9. IRINOTECAN [Concomitant]
  10. TEGAFUR + GIMERACIL + OTERACIL POTASSIUM [Concomitant]

REACTIONS (3)
  - GRAFT VERSUS HOST DISEASE [None]
  - SQUAMOUS CELL CARCINOMA [None]
  - TREATMENT RELATED SECONDARY MALIGNANCY [None]
